FAERS Safety Report 5823494-3 (Version None)
Quarter: 2008Q3

REPORT INFORMATION
  Report Type: 
  Country: None (occurrence: None)
  Receive Date: 20080725
  Receipt Date: 20080717
  Transmission Date: 20090109
  Serious: Yes (Other)
  Sender: FDA-Public Use
  Company Number: NL-PFIZER INC-2008060473

PATIENT
  Age: 34 Year
  Sex: Male

DRUGS (6)
  1. IRINOTECAN HCL [Suspect]
  2. CAPECITABINE [Concomitant]
  3. OXALIPLATIN [Concomitant]
  4. GRANISETRON HCL [Concomitant]
  5. DEXAMETHASONE [Concomitant]
  6. OXYCODONE HCL [Concomitant]

REACTIONS (1)
  - DYSARTHRIA [None]
